FAERS Safety Report 7559266-1 (Version None)
Quarter: 2011Q2

REPORT INFORMATION
  Report Type: 
  Country: None (occurrence: None)
  Receive Date: 20110617
  Receipt Date: 20110617
  Transmission Date: 20111010
  Serious: No
  Sender: FDA-Public Use
  Company Number: None

PATIENT
  Age: 60 Year
  Sex: Female

DRUGS (1)
  1. LAMISIL [Suspect]
     Dates: start: 20100101, end: 20100415

REACTIONS (14)
  - JAUNDICE [None]
  - ASPARTATE AMINOTRANSFERASE INCREASED [None]
  - PLATELET COUNT DECREASED [None]
  - LIVER INJURY [None]
  - WEIGHT DECREASED [None]
  - DECREASED APPETITE [None]
  - BLOOD ALKALINE PHOSPHATASE INCREASED [None]
  - BLOOD BILIRUBIN INCREASED [None]
  - GALLBLADDER DISORDER [None]
  - FATIGUE [None]
  - SLEEP DISORDER [None]
  - ALANINE AMINOTRANSFERASE INCREASED [None]
  - HEPATOTOXICITY [None]
  - PRURITUS [None]
